FAERS Safety Report 24709546 (Version 1)
Quarter: 2024Q4

REPORT INFORMATION
  Report Type: Spontaneous
  Country: JP (occurrence: JP)
  Receive Date: 20241209
  Receipt Date: 20241209
  Transmission Date: 20250115
  Serious: Yes (Death, Other)
  Sender: ALEXION PHARMACEUTICALS
  Company Number: JP-ASTRAZENECA-240106603_064320_P_1

PATIENT
  Age: 83 Year

DRUGS (4)
  1. ANDEXXA [Suspect]
     Active Substance: ANDEXANET ALFA
     Indication: Subdural haematoma
     Dosage: 400 MG INTRAVENOUSLY AT A RATE OF 30 MG/MIN, FOLLOWED BY 480 MG INTRAVENOUSLY AT A RATE OF 4 MG/MIN
  2. ANDEXXA [Suspect]
     Active Substance: ANDEXANET ALFA
     Indication: Haematoma muscle
     Dosage: 400 MG INTRAVENOUSLY AT A RATE OF 30 MG/MIN, FOLLOWED BY 480 MG INTRAVENOUSLY AT A RATE OF 4 MG/MIN
     Route: 042
  3. ANDEXXA [Suspect]
     Active Substance: ANDEXANET ALFA
     Dosage: 400 MG INTRAVENOUSLY AT A RATE OF 30 MG/MIN, FOLLOWED BY 480 MG INTRAVENOUSLY AT A RATE OF 4 MG/MIN
  4. ANDEXXA [Suspect]
     Active Substance: ANDEXANET ALFA
     Dosage: 400 MG INTRAVENOUSLY AT A RATE OF 30 MG/MIN, FOLLOWED BY 480 MG INTRAVENOUSLY AT A RATE OF 4 MG/MIN
     Route: 042

REACTIONS (2)
  - Sepsis [Fatal]
  - Cerebral infarction [Not Recovered/Not Resolved]
